FAERS Safety Report 19325619 (Version 2)
Quarter: 2021Q3

REPORT INFORMATION
  Report Type: Spontaneous
  Country: US (occurrence: US)
  Receive Date: 20210528
  Receipt Date: 20210811
  Transmission Date: 20211014
  Serious: Yes (Death, Other)
  Sender: FDA-Public Use
  Company Number: US-PURDUE-USA-2020-0233052

PATIENT
  Age: 31 Year
  Sex: Female

DRUGS (1)
  1. OXYCONTIN [Suspect]
     Active Substance: OXYCODONE HYDROCHLORIDE
     Indication: PAIN
     Dosage: UNKNOWN
     Route: 048

REACTIONS (7)
  - Substance abuse [Unknown]
  - Anxiety [Unknown]
  - Bipolar disorder [Unknown]
  - Withdrawal syndrome [Unknown]
  - Overdose [Fatal]
  - Mental disorder [Unknown]
  - Drug dependence [Unknown]

NARRATIVE: CASE EVENT DATE: 20150501
